FAERS Safety Report 16765030 (Version 2)
Quarter: 2021Q2

REPORT INFORMATION
  Report Type: Report from Study
  Country: BR (occurrence: BR)
  Receive Date: 20190903
  Receipt Date: 20210514
  Transmission Date: 20210716
  Serious: Yes (Other)
  Sender: FDA-Public Use
  Company Number: BR-EMD SERONO-E2B_90004795

PATIENT
  Age: 23 Year
  Sex: Female

DRUGS (8)
  1. REBIF [Suspect]
     Active Substance: INTERFERON BETA-1A
     Route: 058
     Dates: start: 20171201
  2. VITAMIN D                          /00107901/ [Concomitant]
     Active Substance: ERGOCALCIFEROL
     Dosage: 100 THOUSAND UNITS
  3. VITAMIN B [Concomitant]
     Active Substance: VITAMIN B
     Indication: PRODUCT USED FOR UNKNOWN INDICATION
     Dosage: 100 THOUSAND UNITS
  4. REBIF [Suspect]
     Active Substance: INTERFERON BETA-1A
     Indication: MULTIPLE SCLEROSIS
     Route: 058
     Dates: start: 20171120
  5. RIVOTRIL [Concomitant]
     Active Substance: CLONAZEPAM
     Indication: ANXIETY
     Dosage: 2.5 (UNSPECIFIED UNITS)
  6. RIVOTRIL [Concomitant]
     Active Substance: CLONAZEPAM
     Indication: PANIC DISORDER
  7. VITAMIN D                          /00107901/ [Concomitant]
     Active Substance: ERGOCALCIFEROL
     Indication: PRODUCT USED FOR UNKNOWN INDICATION
  8. BIO?MANGUINHOS BETAINTERFERONA 1A 44 MCG [Suspect]
     Active Substance: INTERFERON BETA-1A
     Indication: MULTIPLE SCLEROSIS
     Dosage: THERAPY START DATE?26?NOV?2019
     Route: 058

REACTIONS (26)
  - Seizure [Unknown]
  - Bipolar disorder [Not Recovered/Not Resolved]
  - Injection site induration [Recovered/Resolved]
  - Injection site bruising [Not Recovered/Not Resolved]
  - Product storage error [Unknown]
  - Nausea [Not Recovered/Not Resolved]
  - Headache [Not Recovered/Not Resolved]
  - Injection site swelling [Recovered/Resolved]
  - Injection site nodule [Not Recovered/Not Resolved]
  - Injection site dryness [Not Recovered/Not Resolved]
  - Poor quality product administered [Unknown]
  - Injection site erythema [Not Recovered/Not Resolved]
  - Treatment noncompliance [Unknown]
  - Dizziness [Unknown]
  - Magnetic resonance imaging abnormal [Unknown]
  - Arthralgia [Not Recovered/Not Resolved]
  - Depression [Not Recovered/Not Resolved]
  - Mood altered [Unknown]
  - Needle issue [Unknown]
  - Liquid product physical issue [Unknown]
  - Necrosis [Recovered/Resolved]
  - Sensitisation [Unknown]
  - Pain [Recovering/Resolving]
  - Burning sensation [Unknown]
  - Injection site pain [Unknown]
  - Multiple sclerosis relapse [Not Recovered/Not Resolved]

NARRATIVE: CASE EVENT DATE: 201711
